FAERS Safety Report 5140770-0 (Version None)
Quarter: 2006Q4

REPORT INFORMATION
  Report Type: 
  Country: None (occurrence: None)
  Receive Date: 20061025
  Receipt Date: 20061013
  Transmission Date: 20070319
  Serious: Yes (Death, Hospitalization)
  Sender: FDA-Public Use
  Company Number: MEDI-0005033

PATIENT
  Age: 3 Month

DRUGS (6)
  1. SYNAGIS [Suspect]
     Indication: ANTIVIRAL PROPHYLAXIS
     Dosage: INTRAMUSCULAR
     Route: 030
     Dates: start: 20061010, end: 20061010
  2. FUROSEMIDE [Concomitant]
  3. SPIRONOLACTONE [Concomitant]
  4. TULOBUTEROL (TULOBUTEROL) [Concomitant]
  5. L-CARBOCISTEINE (CARBOCISTEINE LYSINE) [Concomitant]
  6. CARBAMAZEPINE [Concomitant]

REACTIONS (2)
  - ASPIRATION [None]
  - VENTRICULAR FIBRILLATION [None]
